FAERS Safety Report 6874483-1 (Version None)
Quarter: 2010Q3

REPORT INFORMATION
  Report Type: 
  Country: None (occurrence: None)
  Receive Date: 20100723
  Receipt Date: 20100723
  Transmission Date: 20110219
  Serious: Yes (Hospitalization)
  Sender: FDA-Public Use
  Company Number: None

PATIENT
  Age: 18 Year
  Sex: Female

DRUGS (1)
  1. LOESTRIN 1.5/30 [Suspect]
     Indication: CONTRACEPTION
     Dosage: LOESTRIN DAILY PO
     Route: 048
     Dates: start: 20091101, end: 20100101

REACTIONS (1)
  - EMBOLISM VENOUS [None]
